FAERS Safety Report 6764082-4 (Version None)
Quarter: 2010Q2

REPORT INFORMATION
  Report Type: 
  Country: None (occurrence: None)
  Receive Date: 20100610
  Receipt Date: 20100602
  Transmission Date: 20101027
  Serious: Yes (Other)
  Sender: FDA-Public Use
  Company Number: US-PFIZER INC-2010051902

PATIENT
  Sex: Female
  Weight: 24.55 kg

DRUGS (1)
  1. GENOTROPIN [Suspect]
     Indication: PRADER-WILLI SYNDROME
     Dosage: 0.9 MG, DAILY
     Route: 058
     Dates: start: 20070101, end: 20100419

REACTIONS (1)
  - SLEEP APNOEA SYNDROME [None]
